FAERS Safety Report 13604017 (Version 1)
Quarter: 2017Q2

REPORT INFORMATION
  Report Type: Spontaneous
  Country: US (occurrence: US)
  Receive Date: 20170602
  Receipt Date: 20170602
  Transmission Date: 20170830
  Serious: No
  Sender: FDA-Public Use
  Company Number: US-009507513-1705USA002129

PATIENT

DRUGS (1)
  1. INVANZ [Suspect]
     Active Substance: ERTAPENEM SODIUM
     Dosage: UNK

REACTIONS (4)
  - No adverse event [Unknown]
  - Product label confusion [Unknown]
  - Circumstance or information capable of leading to medication error [Unknown]
  - Drug dose omission [Unknown]
